FAERS Safety Report 5087732-X (Version None)
Quarter: 2006Q3

REPORT INFORMATION
  Report Type: 
  Country: None (occurrence: None)
  Receive Date: 20060821
  Receipt Date: 20060817
  Transmission Date: 20061208
  Serious: Yes (Hospitalization)
  Sender: FDA-Public Use
  Company Number: STA-AE-06-055

PATIENT
  Age: 60 Year
  Sex: Female

DRUGS (2)
  1. DIAZEPAM [Suspect]
     Indication: CONVULSION
     Dosage: 290MG IV
     Route: 042
  2. LORAZEPAM [Suspect]
     Indication: CONVULSION
     Dosage: 1092MG IV
     Route: 042

REACTIONS (5)
  - BLOOD BICARBONATE DECREASED [None]
  - BLOOD LACTIC ACID INCREASED [None]
  - BLOOD OSMOLARITY INCREASED [None]
  - LABORATORY TEST ABNORMAL [None]
  - OSMOLAR GAP ABNORMAL [None]
